FAERS Safety Report 9648600 (Version 1)
Quarter: 2013Q4

REPORT INFORMATION
  Report Type: Spontaneous
  Country: US (occurrence: US)
  Receive Date: 20131028
  Receipt Date: 20131028
  Transmission Date: 20140711
  Serious: No
  Sender: FDA-Public Use
  Company Number: US-009507513-1310USA012499

PATIENT
  Age: 52 Year
  Sex: Female
  Weight: 54.42 kg

DRUGS (1)
  1. CLARITIN REDITABS 12HR [Suspect]
     Indication: SEASONAL ALLERGY
     Dosage: 5 MG, QAM
     Route: 048
     Dates: start: 201306, end: 201309

REACTIONS (2)
  - Inappropriate schedule of drug administration [Unknown]
  - Product physical issue [Unknown]
